FAERS Safety Report 9355140 (Version 4)
Quarter: 2014Q2

REPORT INFORMATION
  Report Type: Spontaneous
  Country: CN (occurrence: CN)
  Receive Date: 20130619
  Receipt Date: 20140514
  Transmission Date: 20141212
  Serious: Yes (Other)
  Sender: FDA-Public Use
  Company Number: PHHY2013CN061135

PATIENT
  Sex: Female

DRUGS (3)
  1. SEBIVO [Suspect]
     Indication: CHRONIC HEPATITIS B
     Dosage: 600 MG/DAY
  2. SEBIVO [Suspect]
     Dosage: 1 U, QD
     Route: 048
     Dates: start: 20130626, end: 20130626
  3. ENTECAVIR [Concomitant]
     Indication: CHRONIC HEPATITIS B
     Dosage: UNK

REACTIONS (3)
  - Diabetes mellitus [Unknown]
  - Premature rupture of membranes [Unknown]
  - Maternal exposure during pregnancy [Unknown]
